FAERS Safety Report 4904467-1 (Version None)
Quarter: 2006Q1

REPORT INFORMATION
  Report Type: 
  Country: None (occurrence: None)
  Receive Date: 20060208
  Receipt Date: 20050908
  Transmission Date: 20060701
  Serious: No
  Sender: FDA-Public Use
  Company Number: US-GLAXOSMITHKLINE-A0573494A

PATIENT
  Age: 54 Year
  Sex: Male

DRUGS (3)
  1. PAROXETINE HCL [Suspect]
     Dosage: 40MG PER DAY
     Route: 048
     Dates: start: 20050901
  2. PAXIL CR [Suspect]
     Route: 048
  3. CRESTOR [Concomitant]

REACTIONS (1)
  - DIZZINESS [None]
